FAERS Safety Report 6207863-8 (Version None)
Quarter: 2009Q2

REPORT INFORMATION
  Report Type: 
  Country: None (occurrence: None)
  Receive Date: 20090528
  Receipt Date: 20090522
  Transmission Date: 20091009
  Serious: Yes (Other)
  Sender: FDA-Public Use
  Company Number: US-JNJCH-2009014448

PATIENT
  Age: 14 Year
  Sex: Male
  Weight: 56.7 kg

DRUGS (1)
  1. LISTERINE WHITENING VIBRANT WHITE PRE-BRUSH RINSE [Suspect]
     Indication: DENTAL CARE
     Dosage: TEXT:ONCE
     Route: 048
     Dates: start: 20090501, end: 20090501

REACTIONS (2)
  - APPLICATION SITE BURN [None]
  - APPLICATION SITE VESICLES [None]
